FAERS Safety Report 13848796 (Version 1)
Quarter: 2017Q3

REPORT INFORMATION
  Report Type: Report from Study
  Country: DE (occurrence: DE)
  Receive Date: 20170809
  Receipt Date: 20170809
  Transmission Date: 20171127
  Serious: Yes (Death, Hospitalization)
  Sender: FDA-Public Use
  Company Number: DE-ROCHE-1973090

PATIENT
  Age: 52 Year
  Sex: Male

DRUGS (1)
  1. TOCILIZUMAB. [Suspect]
     Active Substance: TOCILIZUMAB
     Indication: RHEUMATOID ARTHRITIS
     Route: 065
     Dates: start: 201312, end: 201506

REACTIONS (2)
  - Vena cava thrombosis [Unknown]
  - Basilar artery thrombosis [Fatal]

NARRATIVE: CASE EVENT DATE: 20160919
